FAERS Safety Report 5839163-X (Version None)
Quarter: 2008Q3

REPORT INFORMATION
  Report Type: 
  Country: None (occurrence: None)
  Receive Date: 20080808
  Receipt Date: 20080729
  Transmission Date: 20090109
  Serious: Yes (Other)
  Sender: FDA-Public Use
  Company Number: US-PFIZER INC-2008052396

PATIENT
  Sex: Female
  Weight: 61.7 kg

DRUGS (4)
  1. CHANTIX [Interacting]
     Indication: SMOKING CESSATION THERAPY
     Route: 048
     Dates: start: 20070705, end: 20080501
  2. ZOLOFT [Suspect]
     Indication: DEPRESSION
     Route: 048
     Dates: start: 20070701, end: 20070705
  3. CELEXA [Concomitant]
     Indication: DEPRESSION
     Route: 048
  4. BENTYL [Concomitant]

REACTIONS (12)
  - ANXIETY [None]
  - BRADYPHRENIA [None]
  - DECREASED APPETITE [None]
  - DEPRESSED MOOD [None]
  - DRUG INTERACTION [None]
  - FLIGHT OF IDEAS [None]
  - HEADACHE [None]
  - HYPERHIDROSIS [None]
  - LETHARGY [None]
  - NAUSEA [None]
  - PERSONALITY CHANGE [None]
  - URINARY TRACT INFECTION [None]
